FAERS Safety Report 5583290-1 (Version None)
Quarter: 2008Q1

REPORT INFORMATION
  Report Type: 
  Country: None (occurrence: None)
  Receive Date: 20080107
  Receipt Date: 20080102
  Transmission Date: 20080703
  Serious: Yes (Life-Threatening, Other)
  Sender: FDA-Public Use
  Company Number: DE-PFIZER INC-2007099348

PATIENT
  Sex: Female
  Weight: 79 kg

DRUGS (1)
  1. CELEBREX [Suspect]
     Indication: MUSCULOSKELETAL PAIN
     Route: 048

REACTIONS (3)
  - ANXIETY [None]
  - DEPRESSION [None]
  - SUICIDAL IDEATION [None]
